FAERS Safety Report 21398721 (Version 2)
Quarter: 2022Q4

REPORT INFORMATION
  Report Type: Report from Study
  Country: US (occurrence: US)
  Receive Date: 20221001
  Receipt Date: 20221216
  Transmission Date: 20230112
  Serious: Yes (Hospitalization)
  Sender: FDA-Public Use
  Company Number: US-ABBVIE-4132386

PATIENT
  Sex: Female

DRUGS (1)
  1. HUMIRA [Suspect]
     Active Substance: ADALIMUMAB
     Indication: Rheumatoid arthritis
     Route: 058
     Dates: end: 202210

REACTIONS (8)
  - Thrombosis [Recovering/Resolving]
  - Renal disorder [Recovered/Resolved with Sequelae]
  - Breast pain [Not Recovered/Not Resolved]
  - Blood urine present [Unknown]
  - Illness [Not Recovered/Not Resolved]
  - Gait disturbance [Unknown]
  - Unevaluable event [Unknown]
  - Insomnia [Unknown]
